FAERS Safety Report 7832265-8 (Version None)
Quarter: 2011Q4

REPORT INFORMATION
  Report Type: 
  Country: None (occurrence: None)
  Receive Date: 20111022
  Receipt Date: 20111005
  Transmission Date: 20120403
  Serious: Yes (Other)
  Sender: FDA-Public Use
  Company Number: US-BAYER-2011-052133

PATIENT
  Sex: Female

DRUGS (6)
  1. YAZ [Suspect]
     Indication: ACNE
     Dosage: UNK
     Route: 048
     Dates: start: 20090101, end: 20100101
  2. ATENOLOL [Concomitant]
  3. CYTOMEL [Concomitant]
  4. ADDERALL 5 [Concomitant]
  5. WELLBUTRIN XL [Concomitant]
  6. SYNTHROID [Concomitant]

REACTIONS (3)
  - INJURY [None]
  - PAIN [None]
  - CEREBROVASCULAR ACCIDENT [None]
